FAERS Safety Report 5015697-5 (Version None)
Quarter: 2006Q2

REPORT INFORMATION
  Report Type: 
  Country: None (occurrence: None)
  Receive Date: 20060601
  Receipt Date: 20060524
  Transmission Date: 20061013
  Serious: Yes (Hospitalization)
  Sender: FDA-Public Use
  Company Number: US-JNJFOC-20060505889

PATIENT
  Sex: Female
  Weight: 58.97 kg

DRUGS (2)
  1. TOPAMAX [Suspect]
     Indication: MIGRAINE
     Route: 048
  2. HYDROCHLOROTHIAZIDE [Interacting]
     Indication: MIGRAINE

REACTIONS (5)
  - ANGINA PECTORIS [None]
  - BLOOD POTASSIUM DECREASED [None]
  - CHEST PAIN [None]
  - DRUG INTERACTION [None]
  - RENAL DISORDER [None]
